FAERS Safety Report 7642464 (Version 2)
Quarter: 2013Q2

REPORT INFORMATION
  Report Type: Spontaneous
  Country: GB (occurrence: None)
  Receive Date: 20101006
  Receipt Date: 20130513
  Transmission Date: 20140414
  Serious: Yes (Death)
  Sender: FDA-Public Use
  Company Number: 709941

PATIENT
  Age: 72 Year
  Sex: Female
  Weight: 70 kg

DRUGS (5)
  1. VINCRISTINE SULFATE [Suspect]
     Indication: LYMPHOMA
  2. DOXORUBICIN HYDROCHLORIDE [Suspect]
     Indication: LYMPHOMA
  3. PREDNISOLONE [Suspect]
     Indication: LYMPHOMA
  4. CYCLOPHOSPHAMIDE [Suspect]
     Indication: LYMPHOMA
  5. DASATINIB [Suspect]
     Indication: CHRONIC MYELOID LEUKAEMIA
     Dosage: ORAL
     Route: 048

REACTIONS (2)
  - Pleural effusion [None]
  - Ovarian cancer [None]
